FAERS Safety Report 9352595 (Version 1)
Quarter: 2013Q2

REPORT INFORMATION
  Report Type: Spontaneous
  Country: US (occurrence: US)
  Receive Date: 20130618
  Receipt Date: 20130618
  Transmission Date: 20140414
  Serious: Yes (Other)
  Sender: FDA-Public Use
  Company Number: US-AMGEN-USASP2013041992

PATIENT
  Age: 63 Year
  Sex: Female

DRUGS (6)
  1. ENBREL [Suspect]
     Indication: PRODUCT USED FOR UNKNOWN INDICATION
     Dosage: 50 MG, UNK
     Route: 065
  2. ANTIINFLAMMATORY AND ANTIRHEUMATIC PRODUCTS [Suspect]
     Indication: RHEUMATOID ARTHRITIS
     Dosage: 5 MG, BID (TAKE 1 TABLET PO)
     Route: 048
     Dates: start: 201303
  3. LORATADINE [Concomitant]
     Dosage: 10 MG, UNK
  4. MELOXICAM [Concomitant]
     Dosage: 15 MG, UNK
  5. SYNTHROID [Concomitant]
     Dosage: 88 MUG, UNK
  6. CALCIUM + VIT D [Concomitant]
     Dosage: UNK

REACTIONS (3)
  - Urinary tract infection [Recovered/Resolved]
  - Hypersensitivity [Unknown]
  - Nasopharyngitis [Recovered/Resolved]
